FAERS Safety Report 17968341 (Version 1)
Quarter: 2020Q3

REPORT INFORMATION
  Report Type: Spontaneous
  Country: CA (occurrence: CA)
  Receive Date: 20200701
  Receipt Date: 20200701
  Transmission Date: 20201103
  Serious: Yes (Hospitalization, Other)
  Sender: FDA-Public Use
  Company Number: CA-TEVA-2020-CA-1795453

PATIENT
  Age: 48 Year
  Sex: Male
  Weight: 78 kg

DRUGS (4)
  1. BUPROPION. [Concomitant]
     Active Substance: BUPROPION
  2. PRO?CLONAZEPAM [Concomitant]
     Active Substance: CLONAZEPAM
  3. VENLAFAXINE HYDROCHLORIDE. [Suspect]
     Active Substance: VENLAFAXINE HYDROCHLORIDE
     Indication: MAJOR DEPRESSION
     Route: 065
  4. VENLAFAXINE HYDROCHLORIDE. [Suspect]
     Active Substance: VENLAFAXINE HYDROCHLORIDE
     Indication: DEPRESSION
     Route: 065

REACTIONS (20)
  - Agitation [Not Recovered/Not Resolved]
  - Depressed mood [Not Recovered/Not Resolved]
  - Electric shock [Not Recovered/Not Resolved]
  - Feeling abnormal [Not Recovered/Not Resolved]
  - Negative thoughts [Not Recovered/Not Resolved]
  - Nervousness [Not Recovered/Not Resolved]
  - Crying [Not Recovered/Not Resolved]
  - Loss of consciousness [Not Recovered/Not Resolved]
  - Dissociation [Not Recovered/Not Resolved]
  - Memory impairment [Not Recovered/Not Resolved]
  - Suicide attempt [Not Recovered/Not Resolved]
  - Anxiety [Not Recovered/Not Resolved]
  - Disease progression [Not Recovered/Not Resolved]
  - Balance disorder [Not Recovered/Not Resolved]
  - Insomnia [Not Recovered/Not Resolved]
  - Hallucination [Not Recovered/Not Resolved]
  - Major depression [Not Recovered/Not Resolved]
  - Self esteem decreased [Not Recovered/Not Resolved]
  - Behaviour disorder [Not Recovered/Not Resolved]
  - Psychotic disorder [Not Recovered/Not Resolved]
